FAERS Safety Report 5823229-4 (Version None)
Quarter: 2008Q3

REPORT INFORMATION
  Report Type: 
  Country: None (occurrence: None)
  Receive Date: 20080725
  Receipt Date: 20070823
  Transmission Date: 20090109
  Serious: No
  Sender: FDA-Public Use
  Company Number: A0676060A

PATIENT
  Sex: Female

DRUGS (3)
  1. DYAZIDE [Suspect]
     Indication: HYPERTENSION
     Dosage: 1CAP PER DAY
     Route: 048
     Dates: start: 20050801, end: 20070801
  2. TEMAZEPAM [Concomitant]
  3. VYTORIN [Concomitant]

REACTIONS (1)
  - PAIN IN EXTREMITY [None]
